FAERS Safety Report 19972664 (Version 1)
Quarter: 2021Q4

REPORT INFORMATION
  Report Type: Spontaneous
  Country: US (occurrence: US)
  Receive Date: 20211019
  Receipt Date: 20211019
  Transmission Date: 20220303
  Serious: Yes (Other)
  Sender: FDA-Public Use
  Company Number: None

PATIENT
  Age: 62 Year
  Sex: Female

DRUGS (1)
  1. CASIRIVIMAB\IMDEVIMAB [Suspect]
     Active Substance: CASIRIVIMAB\IMDEVIMAB
     Indication: COVID-19 treatment
     Dosage: ?          OTHER FREQUENCY:ONCE;
     Route: 042
     Dates: start: 20211017, end: 20211017

REACTIONS (6)
  - Dizziness [None]
  - Nausea [None]
  - Asthenia [None]
  - Cold sweat [None]
  - Rash [None]
  - Infusion related reaction [None]

NARRATIVE: CASE EVENT DATE: 20211017
